FAERS Safety Report 7812259-9 (Version None)
Quarter: 2011Q4

REPORT INFORMATION
  Report Type: 
  Country: None (occurrence: None)
  Receive Date: 20111013
  Receipt Date: 20111010
  Transmission Date: 20120403
  Serious: Yes (Death, Hospitalization, Other)
  Sender: FDA-Public Use
  Company Number: BR-MEDIMMUNE-MEDI-0011608

PATIENT
  Sex: Female
  Weight: 8.5 kg

DRUGS (3)
  1. ONDANSETRON HCL [Concomitant]
     Indication: NAUSEA
  2. NEUPOGEN [Concomitant]
  3. SYNAGIS [Suspect]
     Dates: start: 20100420, end: 20110715

REACTIONS (2)
  - CONVULSION [None]
  - PINEAL PARENCHYMAL NEOPLASM MALIGNANT [None]
